FAERS Safety Report 14661610 (Version 1)
Quarter: 2018Q1

REPORT INFORMATION
  Report Type: Spontaneous
  Country: US (occurrence: US)
  Receive Date: 20180320
  Receipt Date: 20180320
  Transmission Date: 20180509
  Serious: Yes (Other)
  Sender: FDA-Public Use
  Company Number: US-SA-2018SA081731

PATIENT
  Age: 61 Year
  Sex: Female

DRUGS (2)
  1. TOUJEO [Suspect]
     Active Substance: INSULIN GLARGINE
     Dosage: DOSE:125 UNIT(S)
     Route: 051
  2. SOLOSTAR [Suspect]
     Active Substance: DEVICE

REACTIONS (9)
  - Glycosylated haemoglobin increased [Recovering/Resolving]
  - Intentional product misuse [Unknown]
  - Vision blurred [Unknown]
  - Blood glucose increased [Unknown]
  - Product use issue [Unknown]
  - Ketoacidosis [Unknown]
  - Memory impairment [Unknown]
  - Dry mouth [Unknown]
  - Drug dose omission [Unknown]
